FAERS Safety Report 14868540 (Version 4)
Quarter: 2018Q3

REPORT INFORMATION
  Report Type: Spontaneous
  Country: IT (occurrence: IT)
  Receive Date: 20180509
  Receipt Date: 20180807
  Transmission Date: 20181010
  Serious: Yes (Hospitalization)
  Sender: FDA-Public Use
  Company Number: IT-ROCHE-2120180

PATIENT
  Age: 58 Year
  Sex: Female

DRUGS (5)
  1. DEPALGOS [Interacting]
     Active Substance: ACETAMINOPHEN\OXYCODONE HYDROCHLORIDE
     Indication: PRODUCT USED FOR UNKNOWN INDICATION
     Dosage: UNIT DOSE: 25 [DRP] 25 GTT, UNK
     Route: 048
     Dates: start: 20180302, end: 20180302
  2. VALIUM [Suspect]
     Active Substance: DIAZEPAM
     Indication: BIPOLAR DISORDER
     Dosage: 15 [DRP]
     Route: 048
     Dates: start: 20180302, end: 20180302
  3. MATRIFEN [Interacting]
     Active Substance: FENTANYL
     Indication: PRODUCT USED FOR UNKNOWN INDICATION
     Dosage: UNK
     Route: 062
     Dates: start: 20180302, end: 20180302
  4. LEXOTAN [Interacting]
     Active Substance: BROMAZEPAM
     Indication: PRODUCT USED FOR UNKNOWN INDICATION
     Dosage: 2.5 MG/ML
     Route: 048
     Dates: start: 20180302, end: 20180302
  5. ENTUMIN [Interacting]
     Active Substance: CLOTHIAPINE
     Indication: INSOMNIA
     Dosage: UNIT DOSE: 25 [DRP] (100 MG/ML)
     Route: 048
     Dates: start: 20180302, end: 20180302

REACTIONS (4)
  - Drug interaction [Unknown]
  - Toxicity to various agents [Recovering/Resolving]
  - Sopor [Recovering/Resolving]
  - Medication error [Unknown]

NARRATIVE: CASE EVENT DATE: 20180302
